FAERS Safety Report 18387580 (Version 8)
Quarter: 2022Q1

REPORT INFORMATION
  Report Type: Report from Study
  Country: US (occurrence: US)
  Receive Date: 20201015
  Receipt Date: 20220324
  Transmission Date: 20220423
  Serious: No
  Sender: FDA-Public Use
  Company Number: NVSC2020US270908

PATIENT
  Sex: Male

DRUGS (2)
  1. MAYZENT [Suspect]
     Active Substance: SIPONIMOD
     Indication: Secondary progressive multiple sclerosis
     Dosage: 2 MG, QD
     Route: 048
     Dates: start: 20200922
  2. AMPYRA [Concomitant]
     Active Substance: DALFAMPRIDINE
     Indication: Product used for unknown indication
     Route: 065

REACTIONS (10)
  - Confusional state [Recovered/Resolved]
  - Diplopia [Recovered/Resolved]
  - Pain [Recovered/Resolved]
  - Weight decreased [Recovering/Resolving]
  - Vision blurred [Recovering/Resolving]
  - Tremor [Recovered/Resolved]
  - Asthenia [Recovered/Resolved]
  - Fatigue [Recovered/Resolved]
  - Therapeutic response decreased [Recovering/Resolving]
  - Feeling abnormal [Not Recovered/Not Resolved]
